FAERS Safety Report 12204198 (Version 1)
Quarter: 2016Q1

REPORT INFORMATION
  Report Type: Spontaneous
  Country: US (occurrence: None)
  Receive Date: 20160322
  Receipt Date: 20160322
  Transmission Date: 20160526
  Serious: Yes (Other)
  Sender: FDA-Public Use
  Company Number: None

PATIENT
  Age: 9 Year
  Sex: Male
  Weight: 32.21 kg

DRUGS (1)
  1. DAYTRANA [Suspect]
     Active Substance: METHYLPHENIDATE
     Indication: ATTENTION DEFICIT/HYPERACTIVITY DISORDER
     Dosage: 1 ONCE DAILY APPLIED TO A SURFACE, USUALLY THE SKIN
     Route: 061

REACTIONS (6)
  - Therapy cessation [None]
  - Educational problem [None]
  - Drug monitoring procedure not performed [None]
  - Abnormal behaviour [None]
  - Physical assault [None]
  - Product distribution issue [None]

NARRATIVE: CASE EVENT DATE: 20160319
